FAERS Safety Report 25916580 (Version 3)
Quarter: 2025Q4

REPORT INFORMATION
  Report Type: Spontaneous
  Country: JP (occurrence: JP)
  Receive Date: 20251014
  Receipt Date: 20251206
  Transmission Date: 20260119
  Serious: Yes (Death, Other)
  Sender: ALEXION PHARMACEUTICALS
  Company Number: JP-ASTRAZENECA-202510JPN006397JP

PATIENT
  Age: 91 Year
  Sex: Male

DRUGS (1)
  1. DAPAGLIFLOZIN [Suspect]
     Active Substance: DAPAGLIFLOZIN
     Indication: Cardiac failure chronic

REACTIONS (3)
  - Death [Fatal]
  - Renal impairment [Unknown]
  - Glomerular filtration rate decreased [Unknown]
